FAERS Safety Report 9154698 (Version 2)
Quarter: 2013Q4

REPORT INFORMATION
  Report Type: Report from Study
  Country: AU (occurrence: AU)
  Receive Date: 20130311
  Receipt Date: 20131217
  Transmission Date: 20140711
  Serious: Yes (Hospitalization)
  Sender: FDA-Public Use
  Company Number: AU-SANOFI-AVENTIS-2013SA022581

PATIENT
  Sex: Male

DRUGS (8)
  1. LANTUS [Suspect]
     Indication: PRODUCT USED FOR UNKNOWN INDICATION
     Route: 058
     Dates: start: 20121114
  2. LANTUS [Suspect]
     Indication: PRODUCT USED FOR UNKNOWN INDICATION
     Route: 065
     Dates: start: 201212
  3. DIAFORMIN [Concomitant]
  4. OMEPRAZOLE [Concomitant]
  5. ANTACIDS [Concomitant]
  6. METOPROLOL [Concomitant]
  7. COVERSYL [Concomitant]
  8. ASPIRIN [Concomitant]

REACTIONS (1)
  - Acute myocardial infarction [Unknown]
